FAERS Safety Report 22040900 (Version 2)
Quarter: 2023Q1

REPORT INFORMATION
  Report Type: Spontaneous
  Country: FR (occurrence: FR)
  Receive Date: 20230227
  Receipt Date: 20230313
  Transmission Date: 20230418
  Serious: Yes (Hospitalization)
  Sender: FDA-Public Use
  Company Number: None

PATIENT
  Age: 65 Year
  Sex: Female

DRUGS (10)
  1. ENOXAPARIN [Suspect]
     Active Substance: ENOXAPARIN
     Indication: Thrombosis prophylaxis
     Dosage: UNK
     Route: 058
  2. TRASTUZUMAB [Suspect]
     Active Substance: TRASTUZUMAB
     Indication: Product used for unknown indication
     Dosage: UNK
     Route: 042
  3. XELODA [Suspect]
     Active Substance: CAPECITABINE
     Indication: Osteoporotic fracture
     Dosage: 2600 MILLIGRAM, QD
     Route: 048
  4. KEPPRA [Suspect]
     Active Substance: LEVETIRACETAM
     Indication: Epilepsy
     Dosage: 2500 MILLIGRAM, QD
     Route: 048
     Dates: start: 20221207
  5. TUKYSA [Suspect]
     Active Substance: TUCATINIB
     Indication: Targeted cancer therapy
     Dosage: 600 MILLIGRAM, QD
     Route: 048
  6. RACECADOTRIL [Suspect]
     Active Substance: RACECADOTRIL
     Indication: Prophylaxis against diarrhoea
     Dosage: UNK
     Route: 048
  7. RACECADOTRIL [Suspect]
     Active Substance: RACECADOTRIL
     Indication: Diarrhoea
  8. IMODIUM [Suspect]
     Active Substance: LOPERAMIDE HYDROCHLORIDE
     Indication: Prophylaxis against diarrhoea
     Dosage: 3 GRAM, QD
     Route: 048
  9. IMODIUM [Suspect]
     Active Substance: LOPERAMIDE HYDROCHLORIDE
     Indication: Diarrhoea
  10. ECONAZOLE [Concomitant]
     Active Substance: ECONAZOLE
     Dosage: UNK
     Route: 065

REACTIONS (2)
  - Epilepsy [Recovering/Resolving]
  - Confusional state [Recovering/Resolving]

NARRATIVE: CASE EVENT DATE: 20230124
